FAERS Safety Report 6518490-7 (Version None)
Quarter: 2009Q4

REPORT INFORMATION
  Report Type: 
  Country: None (occurrence: None)
  Receive Date: 20091226
  Receipt Date: 20091215
  Transmission Date: 20100525
  Serious: Yes (Hospitalization, Other)
  Sender: FDA-Public Use
  Company Number: US-JNJFOC-20091205164

PATIENT
  Sex: Female

DRUGS (14)
  1. DURAGESIC-100 [Suspect]
     Indication: NECK PAIN
     Route: 062
  2. DURAGESIC-100 [Suspect]
     Route: 062
  3. DURAGESIC-100 [Suspect]
     Route: 062
  4. DURAGESIC-100 [Suspect]
     Route: 062
  5. DURAGESIC-100 [Suspect]
     Indication: DRUG USE FOR UNKNOWN INDICATION
     Route: 062
  6. SEROQUEL [Suspect]
     Indication: SLEEP DISORDER
     Route: 048
  7. CORTISONE INJECTIONS [Suspect]
     Indication: PAIN
     Route: 037
  8. CADUET [Suspect]
     Indication: BLOOD PRESSURE
     Route: 048
  9. METOPROLOL TARTRATE [Suspect]
     Indication: BLOOD PRESSURE
     Route: 048
  10. MORPHINE SULFATE [Concomitant]
     Indication: PAIN
     Route: 048
  11. KLONOPIN [Concomitant]
     Indication: DEPRESSION
     Route: 048
  12. DEPAKOTE [Concomitant]
     Indication: ANXIETY
     Route: 048
  13. RANITIDINE [Concomitant]
     Indication: GASTRIC DISORDER
     Route: 048
  14. LEXAPRO [Concomitant]
     Indication: DEPRESSION
     Route: 048

REACTIONS (11)
  - ADVERSE DRUG REACTION [None]
  - DRUG INEFFECTIVE [None]
  - FALL [None]
  - HANGOVER [None]
  - HYPERTENSION [None]
  - HYPOTENSION [None]
  - INADEQUATE ANALGESIA [None]
  - INJECTION SITE OEDEMA [None]
  - MUSCULOSKELETAL DISORDER [None]
  - TENDON RUPTURE [None]
  - TOOTH ABSCESS [None]
